FAERS Safety Report 20623227 (Version 1)
Quarter: 2022Q1

REPORT INFORMATION
  Report Type: Spontaneous
  Country: US (occurrence: None)
  Receive Date: 20220322
  Receipt Date: 20220322
  Transmission Date: 20220423
  Serious: Yes (Disabling)
  Sender: FDA-Public Use
  Company Number: None

PATIENT
  Age: 59 Year
  Sex: Male
  Weight: 81.65 kg

DRUGS (1)
  1. OZEMPIC [Suspect]
     Active Substance: SEMAGLUTIDE
     Indication: Type 2 diabetes mellitus
     Dosage: FREQUENCY : WEEKLY;?
     Dates: start: 20210406, end: 20210406

REACTIONS (4)
  - Taste disorder [None]
  - Nausea [None]
  - Weight decreased [None]
  - Feeling abnormal [None]

NARRATIVE: CASE EVENT DATE: 20210528
